FAERS Safety Report 9178270 (Version 1)
Quarter: 2012Q4

REPORT INFORMATION
  Report Type: 
  Country: US (occurrence: US)
  Receive Date: 20121029
  Receipt Date: 20121029
  Transmission Date: 20130627
  Serious: Yes (Hospitalization)
  Sender: FDA-Public Use
  Company Number: US-PFIZER INC-2012267790

PATIENT
  Age: 73 Year
  Sex: Female
  Weight: 81.63 kg

DRUGS (5)
  1. EFFEXOR XR [Suspect]
     Indication: DEPRESSION
     Dosage: 150 mg, daily
  2. VENLAFAXINE HYDROCHLORIDE [Suspect]
     Indication: DEPRESSION
     Dosage: 150 mg, daily
     Dates: start: 2011, end: 2012
  3. MELOXICAM [Suspect]
     Indication: ARTHRITIS
     Dosage: 7.5 mg, alternate day
  4. MOBIC [Suspect]
     Indication: ARTHRITIS
     Dosage: 7.5 mg, alternate day
  5. TRAMADOL [Concomitant]
     Dosage: 50 mg, daily in the morning

REACTIONS (4)
  - Knee operation [Unknown]
  - Abdominal discomfort [Recovered/Resolved]
  - Drug ineffective [Unknown]
  - Therapeutic response unexpected [Unknown]
